FAERS Safety Report 7376552-9 (Version None)
Quarter: 2011Q1

REPORT INFORMATION
  Report Type: 
  Country: None (occurrence: None)
  Receive Date: 20110325
  Receipt Date: 20110315
  Transmission Date: 20110831
  Serious: Yes (Other)
  Sender: FDA-Public Use
  Company Number: CA-ROCHE-764644

PATIENT
  Sex: Male

DRUGS (13)
  1. SULFASALAZINE [Concomitant]
  2. TOCILIZUMAB [Suspect]
     Indication: RHEUMATOID ARTHRITIS
     Route: 042
     Dates: start: 20101202, end: 20110127
  3. IRON [Concomitant]
  4. HYDROCHLOROTHIAZIDE [Concomitant]
     Dosage: DRUG: HYDROCHLORIZIDE
  5. PANTOLOC [Concomitant]
     Dosage: REPORTED DRUG: PANTALOC
  6. ARTHROTEC [Concomitant]
  7. CEFPROZIL [Concomitant]
     Dosage: REPORTED DRUG:CEPROZIL
  8. ANAPRIL [Concomitant]
  9. HYDROQUINONE [Concomitant]
     Dosage: DRUG: HYDROXYQUININE
  10. HYDROMORPHONE [Concomitant]
     Dosage: REPORTED DRUG: HYDROMORPH TO BE TAKEN AS NECESSARY
  11. PREDNISONE [Concomitant]
  12. CALCIUM [Concomitant]
  13. VITAMIN D [Concomitant]
     Dosage: REPORTED DRUG: VITAMIN D

REACTIONS (1)
  - ANAL FISTULA [None]
